FAERS Safety Report 9644672 (Version 3)
Quarter: 2013Q4

REPORT INFORMATION
  Report Type: Report from Study
  Country: FR (occurrence: FR)
  Receive Date: 20131025
  Receipt Date: 20131209
  Transmission Date: 20140711
  Serious: Yes (Hospitalization, Other)
  Sender: FDA-Public Use
  Company Number: FR-JNJFOC-20131012358

PATIENT
  Age: 50 Year
  Sex: Male
  Weight: 88 kg

DRUGS (24)
  1. REMICADE [Suspect]
     Indication: ENTEROCOLITIS HAEMORRHAGIC
     Route: 042
     Dates: start: 20110727
  2. REMICADE [Suspect]
     Indication: ENTEROCOLITIS HAEMORRHAGIC
     Route: 042
     Dates: start: 20080528
  3. REMICADE [Suspect]
     Indication: ENTEROCOLITIS HAEMORRHAGIC
     Route: 042
     Dates: start: 2009
  4. REMICADE [Suspect]
     Indication: COLITIS ULCERATIVE
     Route: 042
     Dates: start: 20110727
  5. REMICADE [Suspect]
     Indication: COLITIS ULCERATIVE
     Route: 042
     Dates: start: 20080528
  6. REMICADE [Suspect]
     Indication: COLITIS ULCERATIVE
     Route: 042
     Dates: start: 2009
  7. HYDROCORTISONE [Concomitant]
     Indication: PREMEDICATION
     Route: 065
  8. PENTASA [Concomitant]
     Dosage: MORNING AND EVENING
     Route: 065
  9. DIAMICRON [Concomitant]
     Dosage: 30 (UNITS UNSPECIFIED) 1 TABLET MORNING AND EVENING
     Route: 065
  10. PROCORALAN [Concomitant]
     Dosage: 1 TABLET MORNING AND EVENING
     Route: 065
  11. PLAVIX [Concomitant]
     Dosage: 75 (UNITS UNSPECIFIED) 1 TABLET MIDDAY
     Route: 065
  12. KARDEGIC [Concomitant]
     Indication: PLATELET AGGREGATION INHIBITION
     Dosage: 75 (UNITS UNSPECIFIED) 1 SACHET MIDDAY
     Route: 065
  13. OMEPRAZOLE [Concomitant]
     Dosage: 20 (UNITS UNSPECIFIED) 1 TABLET IN THE EVENING
     Route: 065
  14. ATENOLOL [Concomitant]
     Dosage: 100 (UNITS UNSPECIFIED) 1 TABLET IN THE MORNING
     Route: 065
  15. NIDREL [Concomitant]
     Dosage: 20 (UNITS UNSPECIFIED) 1 TABLET IN THE MORNING
     Route: 065
  16. COTAREG (VALSARTAN, HYDROCHLORTHIAZIDE) [Concomitant]
     Dosage: 160/12.5 (UNITS UNSPECIFIED) 1 TABLET IN THE MORNING
     Route: 065
  17. CYMBALTA [Concomitant]
     Dosage: 1 TABLET IN THE MORNING
     Route: 065
  18. OMACOR [Concomitant]
     Dosage: 1 TABLET DAILY
     Route: 065
  19. EZETIMIBE [Concomitant]
     Dosage: 10 (UNITS UNSPECIFIED) 1 TABLET IN THE EVENING
     Route: 065
  20. CRESTOR [Concomitant]
     Dosage: 10 (UNITS UNSPECIFIED) 1 TABLET IN THE EVENING
     Route: 065
  21. PARACETAMOL [Concomitant]
     Route: 065
  22. TRAMADOL [Concomitant]
     Dosage: 50 (UNITS UNSPECIFIED) 1 TABLET 3 TIMES DAILY IF NEEDED
     Route: 065
  23. LANTUS [Concomitant]
     Dosage: 40 UNITS IN THE MORNING AND 64 UNITS IN THE EVENING
     Route: 065
  24. NOVORAPID [Concomitant]
     Dosage: 22 UNIT SIN MORNING, 10 UNITS MIDDAY, AND 26 UNITS IN THE EVENING.
     Route: 065

REACTIONS (3)
  - Periarthritis [Recovered/Resolved]
  - Restless legs syndrome [Unknown]
  - Coronary arterial stent insertion [Unknown]
